FAERS Safety Report 18996610 (Version 1)
Quarter: 2021Q1

REPORT INFORMATION
  Report Type: Spontaneous
  Country: PT (occurrence: PT)
  Receive Date: 20210311
  Receipt Date: 20210311
  Transmission Date: 20210420
  Serious: Yes (Death)
  Sender: FDA-Public Use
  Company Number: PT-BEH-2021129163

PATIENT
  Age: 79 Year
  Sex: Male

DRUGS (8)
  1. DOXORUBICIN [Concomitant]
     Active Substance: DOXORUBICIN
     Route: 065
  2. PREDNISONE. [Concomitant]
     Active Substance: PREDNISONE
     Route: 065
  3. METHYLPREDNISOLONE. [Suspect]
     Active Substance: METHYLPREDNISOLONE
     Indication: ENCEPHALOPATHY
     Route: 065
  4. CYCLOPHOSPHAMIDE. [Concomitant]
     Active Substance: CYCLOPHOSPHAMIDE
     Route: 065
  5. BENDAMUSTINE [Concomitant]
     Active Substance: BENDAMUSTINE
     Route: 065
  6. HUMAN IMMUNOGLOBULIN (INN) [Suspect]
     Active Substance: HUMAN IMMUNOGLOBULIN G
     Indication: ENCEPHALOPATHY
     Route: 065
  7. RITUXIMAB. [Concomitant]
     Active Substance: RITUXIMAB
     Route: 065
  8. VINCRISTINE [Concomitant]
     Active Substance: VINCRISTINE
     Route: 065

REACTIONS (2)
  - Drug ineffective for unapproved indication [Fatal]
  - Off label use [Fatal]
